FAERS Safety Report 5572851-1 (Version None)
Quarter: 2007Q4

REPORT INFORMATION
  Report Type: 
  Country: None (occurrence: None)
  Receive Date: 20071223
  Receipt Date: 20071217
  Transmission Date: 20080405
  Serious: Yes (Other)
  Sender: FDA-Public Use
  Company Number: PHEH2007US09543

PATIENT
  Age: 17 Year
  Sex: Male

DRUGS (5)
  1. EXJADE [Suspect]
     Indication: THALASSAEMIA BETA
     Dosage: 1 G/DAY
     Route: 048
     Dates: start: 20060501, end: 20060801
  2. EXJADE [Suspect]
     Dosage: 1 G, QD
     Route: 048
     Dates: start: 20060801, end: 20070628
  3. FOLIC ACID [Concomitant]
     Dosage: 1 MG, QD
  4. SYNTHROID [Concomitant]
     Indication: HYPOTHYROIDISM
     Dosage: 75 UG, QD
     Dates: start: 20070309
  5. MIRALAX [Concomitant]
     Indication: CONSTIPATION
     Dosage: 17 G, QD
     Dates: start: 20070203

REACTIONS (7)
  - BLOOD BICARBONATE DECREASED [None]
  - BLOOD PH DECREASED [None]
  - CONSTIPATION [None]
  - HYPOTHYROIDISM [None]
  - OPTIC NEURITIS [None]
  - RENAL TUBULAR ACIDOSIS [None]
  - SCOTOMA [None]
